FAERS Safety Report 18190398 (Version 2)
Quarter: 2020Q4

REPORT INFORMATION
  Report Type: Spontaneous
  Country: US (occurrence: US)
  Receive Date: 20200825
  Receipt Date: 20201102
  Transmission Date: 20210113
  Serious: No
  Sender: FDA-Public Use
  Company Number: US-JNJFOC-20200825831

PATIENT
  Age: 66 Year
  Sex: Female

DRUGS (2)
  1. VISINE A MULTI-ACTION EYE ALLERGY RELIEF [Suspect]
     Active Substance: NAPHAZOLINE HYDROCHLORIDE\PHENIRAMINE MALEATE
     Indication: EYE PRURITUS
  2. VISINE A MULTI-ACTION EYE ALLERGY RELIEF [Suspect]
     Active Substance: NAPHAZOLINE HYDROCHLORIDE\PHENIRAMINE MALEATE
     Indication: DRY EYE
     Dosage: ONE DROP ONCE OR TWICE
     Route: 047
     Dates: start: 20200817, end: 20200817

REACTIONS (2)
  - Product use in unapproved indication [Unknown]
  - Eye irritation [Recovered/Resolved]

NARRATIVE: CASE EVENT DATE: 20200817
